FAERS Safety Report 18110083 (Version 1)
Quarter: 2020Q3

REPORT INFORMATION
  Report Type: Spontaneous
  Country: US (occurrence: US)
  Receive Date: 20200804
  Receipt Date: 20200804
  Transmission Date: 20201103
  Serious: No
  Sender: FDA-Public Use
  Company Number: US-GLENMARK PHARMACEUTICALS-2020GMK048026

PATIENT

DRUGS (7)
  1. CLOBETASOL PROPIONATE TOPICAL SOLUTION USP, 0.05% [Suspect]
     Active Substance: CLOBETASOL PROPIONATE
     Indication: ERYTHEMA
     Dosage: UNK, BID (MORNING AND NIGHT)
     Route: 061
     Dates: start: 20190618, end: 20200511
  2. KLOR?CON [Concomitant]
     Active Substance: POTASSIUM CHLORIDE
     Indication: MUSCLE SPASMS
     Dosage: UNK
     Route: 065
  3. CLOBETASOL PROPIONATE TOPICAL SOLUTION USP, 0.05% [Suspect]
     Active Substance: CLOBETASOL PROPIONATE
     Indication: SKIN EXFOLIATION
  4. CLOBETASOL PROPIONATE TOPICAL SOLUTION USP, 0.05% [Suspect]
     Active Substance: CLOBETASOL PROPIONATE
     Indication: ECZEMA
  5. LEXAPRO [Concomitant]
     Active Substance: ESCITALOPRAM OXALATE
     Indication: MENTAL DISORDER
     Dosage: UNK
     Route: 065
  6. KLONOPIN [Concomitant]
     Active Substance: CLONAZEPAM
     Indication: MENTAL DISORDER
     Dosage: UNK
     Route: 065
  7. CLOBETASOL PROPIONATE TOPICAL SOLUTION USP, 0.05% [Suspect]
     Active Substance: CLOBETASOL PROPIONATE
     Indication: PRURITUS

REACTIONS (5)
  - Application site pruritus [Unknown]
  - Application site pain [Recovered/Resolved]
  - Wrong technique in product usage process [Unknown]
  - Alopecia [Recovered/Resolved]
  - Application site irritation [Recovered/Resolved]

NARRATIVE: CASE EVENT DATE: 20190618
